FAERS Safety Report 7816411-8 (Version None)
Quarter: 2011Q4

REPORT INFORMATION
  Report Type: 
  Country: None (occurrence: None)
  Receive Date: 20111017
  Receipt Date: 20111013
  Transmission Date: 20120403
  Serious: Yes (Hospitalization)
  Sender: FDA-Public Use
  Company Number: US-BRISTOL-MYERS SQUIBB COMPANY-14642342

PATIENT
  Age: 48 Year
  Sex: Male
  Weight: 55 kg

DRUGS (3)
  1. TAXOL [Suspect]
     Indication: NON-SMALL CELL LUNG CANCER
     Dosage: 45MG/M2.
     Dates: start: 20090310, end: 20090519
  2. CARBOPLATIN [Suspect]
     Indication: NON-SMALL CELL LUNG CANCER
     Dosage: AUC=2.
     Dates: start: 20090317, end: 20090519
  3. ERBITUX [Suspect]
     Indication: NON-SMALL CELL LUNG CANCER
     Dosage: 400MG/M2 LOADING DOSE DAY 1. THERAPY INTERRUPTED ON 26MAY09 (250 MG/M2)
     Dates: start: 20090310

REACTIONS (11)
  - DEHYDRATION [None]
  - HYPOKALAEMIA [None]
  - OESOPHAGITIS [None]
  - HYPOPHOSPHATAEMIA [None]
  - WHITE BLOOD CELL COUNT DECREASED [None]
  - HYPOMAGNESAEMIA [None]
  - INFECTION [None]
  - ANAEMIA [None]
  - DECREASED APPETITE [None]
  - NEUTROPHIL COUNT DECREASED [None]
  - PLATELET COUNT DECREASED [None]
